FAERS Safety Report 16137423 (Version 1)
Quarter: 2019Q2

REPORT INFORMATION
  Report Type: Report from Study
  Country: BE (occurrence: BE)
  Receive Date: 20190401
  Receipt Date: 20190401
  Transmission Date: 20190711
  Serious: Yes (Death)
  Sender: FDA-Public Use
  Company Number: BE-ROCHE-2289671

PATIENT
  Age: 67 Year
  Sex: Female
  Weight: 50 kg

DRUGS (5)
  1. REVLIMID [Suspect]
     Active Substance: LENALIDOMIDE
     Indication: DIFFUSE LARGE B-CELL LYMPHOMA
     Dosage: ON 20/JUN/2018, SHE RECEIVED MOST RECENT DOSE OF REVLIMID.
     Route: 048
     Dates: start: 20180430
  2. IFOSFAMIDE. [Suspect]
     Active Substance: IFOSFAMIDE
     Indication: DIFFUSE LARGE B-CELL LYMPHOMA
     Dosage: ON 15/JUN/2018, SHE RECEIVED MOST RECENT DOSE OF IFOSFAMIDE.
     Route: 065
     Dates: start: 20180501
  3. CARBOPLATIN. [Suspect]
     Active Substance: CARBOPLATIN
     Indication: DIFFUSE LARGE B-CELL LYMPHOMA
     Dosage: ON 15/JUN/2018, SHE RECEIVED MOST RECENT DOSE OF CARBOPLATIN.
     Route: 065
     Dates: start: 20180501
  4. ETOPOSIDE. [Suspect]
     Active Substance: ETOPOSIDE
     Indication: DIFFUSE LARGE B-CELL LYMPHOMA
     Dosage: ON 16/JUN/2018, SHE RECEIVED MOST RECENT DOSE OF ETOPOSIDE.
     Route: 065
     Dates: start: 20180430
  5. RITUXIMAB. [Suspect]
     Active Substance: RITUXIMAB
     Indication: DIFFUSE LARGE B-CELL LYMPHOMA
     Dosage: ON 14/JUN/2018, SHE RECEIVED MOST RECENT DOSE OF RITUXIMAB.
     Route: 065
     Dates: start: 20180430

REACTIONS (2)
  - Multiple organ dysfunction syndrome [Fatal]
  - Septic shock [Fatal]

NARRATIVE: CASE EVENT DATE: 20180624
